FAERS Safety Report 10228281 (Version 1)
Quarter: 2014Q2

REPORT INFORMATION
  Report Type: Spontaneous
  Country: US (occurrence: None)
  Receive Date: 20140609
  Receipt Date: 20140609
  Transmission Date: 20141212
  Serious: Yes (Other)
  Sender: FDA-Public Use
  Company Number: None

PATIENT
  Age: 28 Year
  Sex: Female
  Weight: 70.31 kg

DRUGS (2)
  1. TOPAMAX [Suspect]
     Indication: OFF LABEL USE
     Dosage: 1@PM/UP DOSE EACH WK USE HANDOUT GUIDE TAKEN BY MOUTH
     Route: 048
     Dates: start: 20140509, end: 20140608
  2. TOPAMAX [Suspect]
     Indication: PAIN MANAGEMENT
     Dosage: 1@PM/UP DOSE EACH WK USE HANDOUT GUIDE TAKEN BY MOUTH
     Route: 048
     Dates: start: 20140509, end: 20140608

REACTIONS (12)
  - Paraesthesia [None]
  - Hypoaesthesia [None]
  - Weight decreased [None]
  - Dysgeusia [None]
  - Tinnitus [None]
  - Paraesthesia [None]
  - Drug ineffective [None]
  - Dizziness [None]
  - Syncope [None]
  - Presyncope [None]
  - Loss of consciousness [None]
  - Off label use [None]
